FAERS Safety Report 9941749 (Version 1)
Quarter: 2014Q1

REPORT INFORMATION
  Report Type: Spontaneous
  Country: US (occurrence: US)
  Receive Date: 20140303
  Receipt Date: 20140303
  Transmission Date: 20141002
  Serious: Yes (Hospitalization, Other)
  Sender: FDA-Public Use
  Company Number: US-ABBVIE-13P-163-1038485-00

PATIENT
  Age: 50 Year
  Sex: Female
  Weight: 79.45 kg

DRUGS (9)
  1. HUMIRA [Suspect]
     Indication: PSORIASIS
     Dates: start: 200901, end: 201010
  2. HUMIRA [Suspect]
     Dates: start: 201208
  3. PRILOSEC [Concomitant]
     Indication: GASTROOESOPHAGEAL REFLUX DISEASE
  4. ZETIA [Concomitant]
     Indication: PRODUCT USED FOR UNKNOWN INDICATION
  5. BABY ASPIRIN [Concomitant]
     Indication: PRODUCT USED FOR UNKNOWN INDICATION
  6. METHOTREXATE [Concomitant]
     Indication: PSORIASIS
     Dates: start: 200905, end: 201010
  7. METHOTREXATE [Concomitant]
     Dates: start: 201208
  8. FOLIC ACID [Concomitant]
     Indication: PRODUCT USED FOR UNKNOWN INDICATION
     Dates: start: 2008, end: 201010
  9. FOLIC ACID [Concomitant]
     Dates: start: 201208

REACTIONS (3)
  - Uterine cancer [Recovered/Resolved]
  - Injection site pain [Recovered/Resolved]
  - Psoriasis [Recovered/Resolved]
